FAERS Safety Report 11875944 (Version 1)
Quarter: 2015Q4

REPORT INFORMATION
  Report Type: Spontaneous
  Country: GB (occurrence: GB)
  Receive Date: 20151229
  Receipt Date: 20151229
  Transmission Date: 20160305
  Serious: Yes (Other)
  Sender: FDA-Public Use
  Company Number: GB-FRESENIUS KABI-FK201506867

PATIENT
  Age: 16 Year
  Sex: Male
  Weight: 48 kg

DRUGS (15)
  1. ITRACONAZOLE. [Concomitant]
     Active Substance: ITRACONAZOLE
  2. COLISTIN SULPHATE [Concomitant]
  3. TOBRAMYCIN. [Concomitant]
     Active Substance: TOBRAMYCIN
  4. FLUDARABINE [Suspect]
     Active Substance: FLUDARABINE PHOSPHATE
     Indication: BONE MARROW CONDITIONING REGIMEN
     Route: 042
     Dates: start: 20151128
  5. COLECALCIFEROL [Concomitant]
     Active Substance: CHOLECALCIFEROL
  6. CYCLOPHOSPHAMIDE. [Concomitant]
     Active Substance: CYCLOPHOSPHAMIDE
  7. MESNA. [Concomitant]
     Active Substance: MESNA
  8. THYMOGLOBULIN [Concomitant]
     Active Substance: LAPINE T-LYMPHOCYTE IMMUNE GLOBULIN
  9. ACICLOVIR [Concomitant]
     Active Substance: ACYCLOVIR
  10. THIOTEPA. [Concomitant]
     Active Substance: THIOTEPA
  11. PENTAMIDINE [Concomitant]
     Active Substance: PENTAMIDINE
  12. ALLOPURINOL. [Concomitant]
     Active Substance: ALLOPURINOL
  13. CLONAZEPAM. [Concomitant]
     Active Substance: CLONAZEPAM
  14. VITAMIN K SUBSTANCES [Concomitant]
  15. URSODEOXYCHOLIC ACID [Concomitant]
     Active Substance: URSODIOL

REACTIONS (6)
  - Dyskinesia [Unknown]
  - Agitation [Not Recovered/Not Resolved]
  - Confusional state [Not Recovered/Not Resolved]
  - Mental disorder [Unknown]
  - Delirium [Not Recovered/Not Resolved]
  - Speech disorder [Unknown]

NARRATIVE: CASE EVENT DATE: 20151130
